FAERS Safety Report 7502375-3 (Version None)
Quarter: 2011Q2

REPORT INFORMATION
  Report Type: 
  Country: None (occurrence: None)
  Receive Date: 20110525
  Receipt Date: 20110516
  Transmission Date: 20111010
  Serious: Yes (Hospitalization)
  Sender: FDA-Public Use
  Company Number: US-ASTELLAS-2011US001047

PATIENT
  Sex: Female

DRUGS (14)
  1. VIBATIV [Suspect]
     Indication: IMPAIRED HEALING
  2. VIBATIV [Suspect]
     Indication: OSTEOMYELITIS
  3. ROCEPHIN [Suspect]
     Indication: IMPAIRED HEALING
  4. VIBATIV [Suspect]
     Indication: DIABETIC ULCER
     Dosage: 10 MG/KG, UID/QD
     Route: 042
     Dates: start: 20110125, end: 20110210
  5. CIPRO [Concomitant]
     Indication: DIABETIC FOOT
     Dosage: UNK
     Route: 065
  6. CIPRO [Concomitant]
     Indication: IMPAIRED HEALING
  7. ROCEPHIN [Suspect]
     Indication: DIABETIC FOOT
     Dosage: 1 G, UID/QD
     Route: 051
     Dates: start: 20110112, end: 20110210
  8. ENALAPRIL MALEATE [Concomitant]
     Indication: PRODUCT USED FOR UNKNOWN INDICATION
     Dosage: UNK
     Route: 065
  9. CEFEPIME [Suspect]
     Indication: DIABETIC FOOT
     Dosage: UNK
     Route: 065
  10. CEFEPIME [Suspect]
     Indication: IMPAIRED HEALING
  11. AUGMENTIN [Concomitant]
     Indication: DIABETIC FOOT
     Dosage: UNK
     Route: 065
  12. AUGMENTIN [Concomitant]
     Indication: IMPAIRED HEALING
  13. ALLOPURINOL [Concomitant]
     Indication: PRODUCT USED FOR UNKNOWN INDICATION
     Dosage: UNK
     Route: 065
  14. METFORMIN HYDROCHLORIDE [Concomitant]
     Indication: PRODUCT USED FOR UNKNOWN INDICATION
     Dosage: UNK
     Route: 065

REACTIONS (8)
  - DIABETES MELLITUS INADEQUATE CONTROL [None]
  - ANAEMIA [None]
  - LEUKOPENIA [None]
  - PANCYTOPENIA [None]
  - DIARRHOEA [None]
  - RENAL FAILURE ACUTE [None]
  - TUBULOINTERSTITIAL NEPHRITIS [None]
  - THROMBOCYTOPENIA [None]
